FAERS Safety Report 6938931-0 (Version None)
Quarter: 2010Q3

REPORT INFORMATION
  Report Type: 
  Country: None (occurrence: None)
  Receive Date: 20100824
  Receipt Date: 20100818
  Transmission Date: 20110219
  Serious: Yes (Hospitalization)
  Sender: FDA-Public Use
  Company Number: B0671281A

PATIENT

DRUGS (7)
  1. LAMICTAL [Suspect]
     Indication: EPILEPSY
     Route: 065
  2. KEPPRA [Suspect]
     Indication: EPILEPSY
     Route: 065
  3. PHENYTOIN SODIUM CAP [Suspect]
     Indication: EPILEPSY
     Route: 065
  4. NEURONTIN [Suspect]
     Indication: EPILEPSY
     Route: 065
  5. CIPRAMIL [Suspect]
     Indication: EPILEPSY
     Route: 065
  6. EFFEXOR [Suspect]
     Indication: EPILEPSY
     Route: 065
  7. TEGRETOL [Suspect]
     Indication: EPILEPSY
     Route: 065

REACTIONS (10)
  - DEPRESSION [None]
  - EJACULATION DISORDER [None]
  - EMOTIONAL DISTRESS [None]
  - HEADACHE [None]
  - INSOMNIA [None]
  - MENTAL IMPAIRMENT [None]
  - SOMNOLENCE [None]
  - SUICIDAL IDEATION [None]
  - SUICIDE ATTEMPT [None]
  - THOUGHT BLOCKING [None]
